FAERS Safety Report 8917207 (Version 3)
Quarter: 2013Q3

REPORT INFORMATION
  Report Type: Report from Study
  Country: DE (occurrence: DE)
  Receive Date: 20121120
  Receipt Date: 20130729
  Transmission Date: 20140515
  Serious: Yes (Hospitalization)
  Sender: FDA-Public Use
  Company Number: DE-AMGEN-DEUCT2012073707

PATIENT
  Age: 78 Year
  Sex: Male
  Weight: 76 kg

DRUGS (6)
  1. ETANERCEPT [Suspect]
     Indication: PSORIASIS
     Dosage: 50 MG, QWK
     Route: 058
     Dates: start: 20120104, end: 20120730
  2. ETANERCEPT [Suspect]
     Indication: PSORIATIC ARTHROPATHY
  3. ISOKET [Concomitant]
     Indication: CORONARY ARTERY DISEASE
     Dosage: 20 MG, 2X/DAY
     Route: 048
     Dates: start: 200309
  4. ARCOXIA [Concomitant]
     Indication: PSORIASIS
     Dosage: 90 MG, 1X/DAY
     Dates: start: 200705
  5. DIGITOXIN [Concomitant]
     Indication: CORONARY ARTERY DISEASE
     Dosage: UNK
     Route: 048
     Dates: start: 200309
  6. MTX                                /00113802/ [Concomitant]
     Indication: PSORIASIS
     Dosage: 20 MG, WEEKLY
     Route: 048
     Dates: start: 200310

REACTIONS (2)
  - Arthralgia [Recovered/Resolved]
  - Drug ineffective [Unknown]
